FAERS Safety Report 4922563-X (Version None)
Quarter: 2006Q1

REPORT INFORMATION
  Report Type: 
  Country: None (occurrence: None)
  Receive Date: 20060224
  Receipt Date: 20060221
  Transmission Date: 20060701
  Serious: Yes (Other)
  Sender: FDA-Public Use
  Company Number: US-GLAXOSMITHKLINE-A0594647A

PATIENT
  Sex: Male

DRUGS (2)
  1. PAXIL CR [Suspect]
     Route: 048
  2. TRAZODONE [Concomitant]

REACTIONS (5)
  - HEADACHE [None]
  - PANIC ATTACK [None]
  - RESTLESSNESS [None]
  - STOMACH DISCOMFORT [None]
  - SUICIDAL IDEATION [None]
